FAERS Safety Report 11193511 (Version 2)
Quarter: 2018Q1

REPORT INFORMATION
  Report Type: Spontaneous
  Country: AT (occurrence: AT)
  Receive Date: 20150616
  Receipt Date: 20180110
  Transmission Date: 20180508
  Serious: Yes (Life-Threatening, Other)
  Sender: FDA-Public Use
  Company Number: AT-PFIZER INC-2015199227

PATIENT
  Age: 35 Year
  Sex: Female
  Weight: 72 kg

DRUGS (8)
  1. ABILIFY [Suspect]
     Active Substance: ARIPIPRAZOLE
     Dosage: 5 MG, UNK
     Dates: start: 20150128, end: 20150130
  2. ZELDOX [Suspect]
     Active Substance: ZIPRASIDONE
     Dosage: 100 MG, UNK
     Dates: start: 201304, end: 20150125
  3. ZELDOX [Suspect]
     Active Substance: ZIPRASIDONE
     Dosage: 40 MG, UNK
     Dates: start: 20150126, end: 20150126
  4. DOMINAL (PROTHIPENDYL HYDROCHLORIDE) [Suspect]
     Active Substance: PROTHIPENDYL HYDROCHLORIDE
     Dosage: 80 MG, UNK
     Dates: end: 20150126
  5. PRAXITEN [Concomitant]
     Active Substance: OXAZEPAM
     Dosage: 22.5 MG, UNK
     Dates: start: 20150128, end: 20150130
  6. SERTRALINE HCL [Suspect]
     Active Substance: SERTRALINE HYDROCHLORIDE
     Dosage: 100 MG, UNK
     Dates: end: 20150208
  7. LEPONEX [Suspect]
     Active Substance: CLOZAPINE
     Dosage: 700 MG, UNK
     Dates: start: 200701, end: 20150202
  8. LEPONEX [Suspect]
     Active Substance: CLOZAPINE
     Dosage: 800 MG, UNK
     Dates: start: 20150203

REACTIONS (1)
  - Electrocardiogram QT prolonged [Recovered/Resolved]

NARRATIVE: CASE EVENT DATE: 20150128
